FAERS Safety Report 7332745-8 (Version None)
Quarter: 2011Q1

REPORT INFORMATION
  Report Type: 
  Country: None (occurrence: None)
  Receive Date: 20110304
  Receipt Date: 20101022
  Transmission Date: 20110831
  Serious: Yes (Hospitalization)
  Sender: FDA-Public Use
  Company Number: US-TYCO HEALTHCARE/MALLINCKRODT-T201002117

PATIENT
  Age: 71 Year
  Sex: Male
  Weight: 92.608 kg

DRUGS (15)
  1. PERCOCET [Suspect]
     Indication: PAIN
     Dosage: 5 MG, PRN
     Route: 048
     Dates: start: 20090819
  2. LORTAB [Suspect]
     Indication: PAIN
     Dosage: UNK
     Route: 048
     Dates: start: 20090819, end: 20100710
  3. HIZAAR [Concomitant]
     Indication: HYPERTENSION
     Dosage: 12.5 MG, QD
     Dates: start: 20070101
  4. OXYCONTIN [Suspect]
     Indication: PAIN
     Dosage: 10 MEQ, PRN
     Route: 048
     Dates: start: 20100310, end: 20100710
  5. NUCYNTA [Suspect]
     Indication: PAIN
     Dosage: 50 MG, PRN
     Route: 048
     Dates: start: 20090916
  6. TEKTURNA [Concomitant]
     Indication: RENIN-ANGIOTENSIN SYSTEM INHIBITION
     Dosage: 300 MG, QD
     Route: 048
     Dates: start: 20080101
  7. TENORMIN [Concomitant]
     Dosage: 25 MG, QD
     Route: 048
     Dates: start: 20070101
  8. SUNITINIB/PLACEBO [Suspect]
     Indication: PROSTATE CANCER
     Dosage: 37.5 MG, QD
     Route: 048
     Dates: start: 20091021, end: 20100622
  9. AMBIEN [Suspect]
     Indication: INSOMNIA
     Dosage: 10 MG, Q HS
     Route: 048
     Dates: start: 20060101
  10. ASPIRIN [Concomitant]
     Indication: ANALGESIC THERAPY
     Dosage: 81 MG, QD
     Route: 048
     Dates: start: 20040901
  11. ZOCOR [Concomitant]
     Indication: LIPIDS ABNORMAL
     Dosage: 80 MG, QD
     Route: 048
     Dates: start: 20040901
  12. NORFLEX                            /00018303/ [Suspect]
     Indication: MUSCULOSKELETAL STIFFNESS
     Dosage: 100 MG, BID
     Route: 048
     Dates: start: 20091211
  13. PLAVIX [Concomitant]
     Indication: STENT PLACEMENT
     Dosage: 75 MG, QD
     Route: 048
     Dates: start: 20040901
  14. PREDNISONE [Suspect]
     Indication: PROSTATE CANCER
     Dosage: 10 MG, BID
     Route: 048
     Dates: start: 20091021, end: 20100622
  15. RESTORIL [Suspect]
     Indication: SEDATIVE THERAPY
     Dosage: 15 MG, Q HS
     Route: 048
     Dates: start: 20100607

REACTIONS (1)
  - CONFUSIONAL STATE [None]
